FAERS Safety Report 11553713 (Version 7)
Quarter: 2016Q2

REPORT INFORMATION
  Report Type: Report from Study
  Country: US (occurrence: US)
  Receive Date: 20150925
  Receipt Date: 20160531
  Transmission Date: 20160815
  Serious: No
  Sender: FDA-Public Use
  Company Number: US-AMGEN-USASL2015095873

PATIENT
  Age: 61 Year
  Sex: Female

DRUGS (1)
  1. ENBREL [Suspect]
     Active Substance: ETANERCEPT
     Indication: RHEUMATOID ARTHRITIS
     Dosage: 50 MG, WEEKLY
     Route: 065
     Dates: start: 20150909

REACTIONS (5)
  - Urinary tract infection [Unknown]
  - Headache [Unknown]
  - Upper respiratory tract infection [Unknown]
  - Infection [Unknown]
  - Chest pain [Unknown]

NARRATIVE: CASE EVENT DATE: 2015
